FAERS Safety Report 8158873-5 (Version None)
Quarter: 2012Q1

REPORT INFORMATION
  Report Type: 
  Country: None (occurrence: None)
  Receive Date: 20120223
  Receipt Date: 20120221
  Transmission Date: 20120608
  Serious: Yes (Hospitalization)
  Sender: FDA-Public Use
  Company Number: US-PFIZER INC-2012046353

PATIENT
  Sex: Female
  Weight: 54.422 kg

DRUGS (4)
  1. HYDROCODONE [Concomitant]
     Indication: ARTHRALGIA
     Dosage: UNK
  2. LYRICA [Suspect]
     Indication: FIBROMYALGIA
     Dosage: 75 MG, 2X/DAY
     Route: 048
     Dates: start: 20070101, end: 20111201
  3. AMLODIPINE [Concomitant]
     Indication: HYPERTENSION
     Dosage: 5 MG, UNK
  4. BENAZEPRIL HYDROCHLORIDE/HYDROCHLOROTHIAZIDE [Concomitant]
     Indication: HYPERTENSION
     Dosage: 10/12.5 MG, UNK

REACTIONS (4)
  - ASTHMA [None]
  - SEASONAL ALLERGY [None]
  - RESPIRATORY TRACT CONGESTION [None]
  - BRONCHITIS [None]
